FAERS Safety Report 19577637 (Version 1)
Quarter: 2021Q3

REPORT INFORMATION
  Report Type: Spontaneous
  Country: US (occurrence: US)
  Receive Date: 20210719
  Receipt Date: 20210719
  Transmission Date: 20211014
  Serious: Yes (Other)
  Sender: FDA-Public Use
  Company Number: US-GLAXOSMITHKLINE-US2021GSK151853

PATIENT
  Age: 74 Year
  Sex: Male

DRUGS (4)
  1. BELANTAMAB MAFODOTIN. [Suspect]
     Active Substance: BELANTAMAB MAFODOTIN
     Dosage: 1.9 MG/KG
     Route: 042
  2. BELANTAMAB MAFODOTIN. [Suspect]
     Active Substance: BELANTAMAB MAFODOTIN
     Dosage: 1.9 MG/KG
     Route: 042
  3. PREDNISOLONE SODIUM PHOSPHATE. [Concomitant]
     Active Substance: PREDNISOLONE SODIUM PHOSPHATE
     Indication: ADRENOCORTICAL STEROID THERAPY
     Dosage: UNK, ONLY IN ONE EYE (CYCLE 1?4),THEN IN BOTH EYES
     Route: 061
  4. BELANTAMAB MAFODOTIN. [Suspect]
     Active Substance: BELANTAMAB MAFODOTIN
     Indication: PLASMA CELL MYELOMA
     Dosage: 2.5 MG/KG, EVERY 3 WEEKS
     Route: 042

REACTIONS (6)
  - Keratopathy [Recovered/Resolved]
  - Corneal opacity [Unknown]
  - Platelet count decreased [Unknown]
  - Condition aggravated [Recovered/Resolved]
  - Cornea verticillata [Recovered/Resolved]
  - Corneal epithelial microcysts [Recovered/Resolved]
